FAERS Safety Report 9527201 (Version 3)
Quarter: 2013Q4

REPORT INFORMATION
  Report Type: Spontaneous
  Country: US (occurrence: US)
  Receive Date: 20130917
  Receipt Date: 20131008
  Transmission Date: 20140711
  Serious: Yes (Other)
  Sender: FDA-Public Use
  Company Number: US-AMGEN-USASP2013053571

PATIENT
  Age: 63 Year
  Sex: Female

DRUGS (7)
  1. PROCRIT [Suspect]
     Indication: MYELODYSPLASTIC SYNDROME
     Dosage: 60000 UNIT, QWK
     Route: 058
     Dates: start: 20130424
  2. PROCRIT [Suspect]
     Indication: ANAEMIA
  3. PRINZIDE [Concomitant]
     Indication: BLOOD PRESSURE
     Dosage: 10-12.5, QD
     Route: 048
     Dates: start: 20110715
  4. CALCIUM [Concomitant]
     Dosage: UNK
     Dates: start: 200001
  5. FISH OIL [Concomitant]
     Dosage: UNK
     Dates: start: 200001
  6. MULTI-VIT [Concomitant]
     Dosage: UNK
  7. GLUCOSAMIN CHONDROITIN             /01430901/ [Concomitant]
     Dosage: UNK

REACTIONS (1)
  - Hypersensitivity vasculitis [Not Recovered/Not Resolved]
